FAERS Safety Report 9172155 (Version 3)
Quarter: 2013Q2

REPORT INFORMATION
  Report Type: Spontaneous
  Country: US (occurrence: US)
  Receive Date: 20130319
  Receipt Date: 20130508
  Transmission Date: 20140414
  Serious: Yes (Other)
  Sender: FDA-Public Use
  Company Number: US-BAYER-2013-034328

PATIENT
  Sex: Male

DRUGS (2)
  1. ULTRAVIST INJECTION [Suspect]
  2. ULTRAVIST INJECTION [Suspect]

REACTIONS (1)
  - Unevaluable event [None]
